FAERS Safety Report 9624685 (Version 1)
Quarter: 2013Q4

REPORT INFORMATION
  Report Type: Spontaneous
  Country: FR (occurrence: None)
  Receive Date: 20131010
  Receipt Date: 20131010
  Transmission Date: 20140711
  Serious: Yes (Other)
  Sender: FDA-Public Use
  Company Number: 2013MPI00475

PATIENT
  Age: 54 Year
  Sex: 0
  Weight: 82 kg

DRUGS (1)
  1. BRENTUXIMAB VEDOTIN [Suspect]
     Indication: HODGKIN^S DISEASE
     Dosage: 1.8 MG/KG Q21D,INTRAVENEOUS
     Route: 042

REACTIONS (2)
  - Pneumocystis jirovecii pneumonia [None]
  - Weight decreased [None]
